FAERS Safety Report 17185095 (Version 1)
Quarter: 2019Q4

REPORT INFORMATION
  Report Type: Spontaneous
  Country: US (occurrence: US)
  Receive Date: 20191129
  Receipt Date: 20191129
  Transmission Date: 20200122
  Serious: Yes (Hospitalization)
  Sender: FDA-Public Use
  Company Number: None

PATIENT
  Sex: Female
  Weight: 61.6 kg

DRUGS (6)
  1. ONCASPAR [Concomitant]
     Active Substance: PEGASPARGASE
  2. CYTARABINE. [Concomitant]
     Active Substance: CYTARABINE
  3. CYCLOPHOSPHAMIDE (26271) [Suspect]
     Active Substance: CYCLOPHOSPHAMIDE
  4. MERCAPTOPURINE. [Concomitant]
     Active Substance: MERCAPTOPURINE
  5. VINCRI STINE SULFATE [Concomitant]
     Active Substance: VINCRISTINE SULFATE
  6. METHOTREXATE. [Concomitant]
     Active Substance: METHOTREXATE

REACTIONS (3)
  - Device related infection [None]
  - Neutropenia [None]
  - Hypotension [None]

NARRATIVE: CASE EVENT DATE: 20191126
